FAERS Safety Report 13952943 (Version 2)
Quarter: 2018Q3

REPORT INFORMATION
  Report Type: Spontaneous
  Country: US (occurrence: US)
  Receive Date: 20170911
  Receipt Date: 20180917
  Transmission Date: 20181010
  Serious: No
  Sender: FDA-Public Use
  Company Number: US-TEVA-770396USA

PATIENT
  Sex: Male

DRUGS (1)
  1. FENTANYL TRANSDERMAL SYSTEM [Suspect]
     Active Substance: FENTANYL
     Dates: start: 20170510, end: 20170514

REACTIONS (6)
  - Application site rash [Unknown]
  - Urticaria [Unknown]
  - Drug ineffective [Unknown]
  - Product adhesion issue [Unknown]
  - Hypersensitivity [Unknown]
  - Application site pruritus [Unknown]
